FAERS Safety Report 5620956-9 (Version None)
Quarter: 2008Q1

REPORT INFORMATION
  Report Type: 
  Country: None (occurrence: None)
  Receive Date: 20080208
  Receipt Date: 20080204
  Transmission Date: 20080703
  Serious: Yes (Other)
  Sender: FDA-Public Use
  Company Number: US-PFIZER INC-2008009523

PATIENT
  Sex: Male
  Weight: 99.8 kg

DRUGS (4)
  1. GEODON [Suspect]
     Indication: BIPOLAR DISORDER
  2. GEODON [Suspect]
  3. LAMICTAL [Concomitant]
  4. VYTORIN [Concomitant]

REACTIONS (13)
  - COLD SWEAT [None]
  - DIABETES MELLITUS MALNUTRITION-RELATED [None]
  - FATIGUE [None]
  - FEELING ABNORMAL [None]
  - FEELING OF DESPAIR [None]
  - FLIGHT OF IDEAS [None]
  - HUNGER [None]
  - INSOMNIA [None]
  - NERVOUSNESS [None]
  - RESTLESS LEGS SYNDROME [None]
  - SUICIDAL IDEATION [None]
  - WEIGHT INCREASED [None]
  - WITHDRAWAL SYNDROME [None]
